FAERS Safety Report 15454392 (Version 1)
Quarter: 2018Q3

REPORT INFORMATION
  Report Type: Spontaneous
  Country: US (occurrence: US)
  Receive Date: 20180927
  Receipt Date: 20180927
  Transmission Date: 20181010
  Serious: Yes (Disabling, Other)
  Sender: FDA-Public Use
  Company Number: None

PATIENT
  Age: 70 Year
  Sex: Male
  Weight: 78.47 kg

DRUGS (9)
  1. METFORMIN [Concomitant]
     Active Substance: METFORMIN HYDROCHLORIDE
  2. VIT A C E [Concomitant]
  3. FELODIPINE. [Concomitant]
     Active Substance: FELODIPINE
  4. INSULIN RN [Concomitant]
  5. GLIPIZIDE. [Suspect]
     Active Substance: GLIPIZIDE
     Indication: DIABETES MELLITUS
     Route: 048
     Dates: start: 20121022, end: 20131029
  6. ASPRIN [Concomitant]
     Active Substance: ASPIRIN
  7. Q?10 [Concomitant]
  8. NORVASC [Concomitant]
     Active Substance: AMLODIPINE BESYLATE
  9. HYDROCHLOROTHIAZIDE. [Concomitant]
     Active Substance: HYDROCHLOROTHIAZIDE

REACTIONS (7)
  - Ligament disorder [None]
  - Fatigue [None]
  - Gait inability [None]
  - Asthenia [None]
  - Drug ineffective [None]
  - Neoplasm malignant [None]
  - Insomnia [None]
